FAERS Safety Report 6903025-7 (Version None)
Quarter: 2010Q3

REPORT INFORMATION
  Report Type: 
  Country: None (occurrence: None)
  Receive Date: 20100803
  Receipt Date: 20080730
  Transmission Date: 20110219
  Serious: No
  Sender: FDA-Public Use
  Company Number: US-PFIZER INC-2008063941

PATIENT
  Age: 60 Year
  Sex: Male
  Weight: 136.1 kg

DRUGS (2)
  1. LYRICA [Suspect]
     Dates: start: 20070101
  2. DRUG USED IN DIABETES [Concomitant]

REACTIONS (2)
  - MENTAL DISORDER [None]
  - WEIGHT INCREASED [None]
